FAERS Safety Report 7587990-3 (Version None)
Quarter: 2011Q3

REPORT INFORMATION
  Report Type: 
  Country: None (occurrence: None)
  Receive Date: 20110705
  Receipt Date: 20110627
  Transmission Date: 20111222
  Serious: Yes (Other)
  Sender: FDA-Public Use
  Company Number: US-PFIZER INC-2011143893

PATIENT
  Sex: Male

DRUGS (1)
  1. CHANTIX [Suspect]
     Dosage: UNK
     Dates: start: 20070301

REACTIONS (10)
  - SUICIDAL IDEATION [None]
  - THINKING ABNORMAL [None]
  - RESTLESSNESS [None]
  - SLEEP DISORDER [None]
  - IRRITABILITY [None]
  - NIGHTMARE [None]
  - DISORIENTATION [None]
  - DISTURBANCE IN ATTENTION [None]
  - ASTHENIA [None]
  - DEPRESSION [None]
